FAERS Safety Report 25703820 (Version 3)
Quarter: 2025Q3

REPORT INFORMATION
  Report Type: Spontaneous
  Country: CN (occurrence: CN)
  Receive Date: 20250820
  Receipt Date: 20250926
  Transmission Date: 20251021
  Serious: Yes (Hospitalization)
  Sender: RANBAXY
  Company Number: CN-SUN PHARMACEUTICAL INDUSTRIES INC-2025R1-523502

PATIENT
  Age: 68 Year
  Sex: Male

DRUGS (1)
  1. ODOMZO [Suspect]
     Active Substance: SONIDEGIB
     Indication: Basal cell carcinoma
     Dosage: 1200 MILLIGRAM, QD
     Route: 048
     Dates: start: 20250617, end: 20250803

REACTIONS (5)
  - Myositis [Recovering/Resolving]
  - Abdominal discomfort [Unknown]
  - Decreased appetite [Unknown]
  - Hepatic function abnormal [Recovering/Resolving]
  - Intentional product use issue [Unknown]

NARRATIVE: CASE EVENT DATE: 20250731
